FAERS Safety Report 5368322-8 (Version None)
Quarter: 2007Q2

REPORT INFORMATION
  Report Type: 
  Country: None (occurrence: None)
  Receive Date: 20070619
  Receipt Date: 20070605
  Transmission Date: 20071010
  Serious: Yes (Hospitalization)
  Sender: FDA-Public Use
  Company Number: 2007AL002232

PATIENT
  Age: 74 Year
  Sex: Male

DRUGS (1)
  1. CARBAMAZEPINE [Suspect]
     Indication: DRUG USE FOR UNKNOWN INDICATION

REACTIONS (23)
  - ATRIAL FIBRILLATION [None]
  - BLOOD CHOLINESTERASE DECREASED [None]
  - BRONCHOSCOPY ABNORMAL [None]
  - CELL DEATH [None]
  - CHOLESTASIS [None]
  - CONFUSIONAL STATE [None]
  - CRYPTOGENIC ORGANISING PNEUMONIA [None]
  - CYTOMEGALOVIRUS ANTIBODY POSITIVE [None]
  - EOSINOPHILIA [None]
  - HALLUCINATION, VISUAL [None]
  - HEART SOUNDS ABNORMAL [None]
  - HEPATOMEGALY [None]
  - HYPERGAMMAGLOBULINAEMIA [None]
  - HYPERPLASIA [None]
  - HYPOVENTILATION [None]
  - ILL-DEFINED DISORDER [None]
  - PLEURAL EFFUSION [None]
  - RESPIRATORY FAILURE [None]
  - RESTRICTIVE PULMONARY DISEASE [None]
  - RHEUMATOID FACTOR INCREASED [None]
  - SKIN LESION [None]
  - TACHYCARDIA [None]
  - VARICELLA ZOSTER VIRUS SEROLOGY POSITIVE [None]
